FAERS Safety Report 4643811-X (Version None)
Quarter: 2005Q2

REPORT INFORMATION
  Report Type: 
  Country: None (occurrence: None)
  Receive Date: 20050331
  Receipt Date: 20050221
  Transmission Date: 20051028
  Serious: No
  Sender: FDA-Public Use
  Company Number: 05P-163-0291372-00

PATIENT
  Age: 50 Year
  Sex: Female
  Weight: 48.9885 kg

DRUGS (5)
  1. HUMIRA [Suspect]
     Indication: RHEUMATOID ARTHRITIS
     Dosage: 40 MG, 1 IN 2 WK, SUBCUTANEOUS
     Route: 058
     Dates: start: 20040201, end: 20041201
  2. PREDNISONE [Concomitant]
  3. SULFASALAZINE [Concomitant]
  4. ATORVASTATIN CALCIUM [Concomitant]
  5. LANSOPRAZOLE [Concomitant]

REACTIONS (1)
  - NASOPHARYNGITIS [None]
